FAERS Safety Report 7015255-7 (Version None)
Quarter: 2010Q3

REPORT INFORMATION
  Report Type: 
  Country: None (occurrence: None)
  Receive Date: 20100927
  Receipt Date: 20100917
  Transmission Date: 20110219
  Serious: Yes (Other)
  Sender: FDA-Public Use
  Company Number: US-SANOFI-AVENTIS-2010SA056467

PATIENT
  Age: 73 Year
  Sex: Male

DRUGS (16)
  1. MULTAQ [Suspect]
     Indication: ATRIAL FIBRILLATION
     Route: 048
     Dates: start: 20100801
  2. CARVEDILOL [Suspect]
     Route: 048
  3. CARVEDILOL [Suspect]
     Route: 048
  4. LASIX [Concomitant]
     Route: 048
  5. DIOVAN [Concomitant]
  6. ELAVIL [Concomitant]
  7. XANAX [Concomitant]
  8. PRILOSEC [Concomitant]
  9. ASPIRIN [Concomitant]
  10. FLONASE [Concomitant]
  11. ADVAIR DISKUS 100/50 [Concomitant]
  12. ALBUTEROL [Concomitant]
  13. TIOTROPIUM BROMIDE [Concomitant]
  14. FISH OIL [Concomitant]
  15. VICODIN [Concomitant]
  16. NITROGLYCERIN [Concomitant]

REACTIONS (5)
  - CARDIAC FAILURE [None]
  - DYSPNOEA [None]
  - DYSPNOEA EXERTIONAL [None]
  - HEART RATE DECREASED [None]
  - ORTHOPNOEA [None]
